FAERS Safety Report 8261623-5 (Version None)
Quarter: 2012Q2

REPORT INFORMATION
  Report Type: 
  Country: None (occurrence: None)
  Receive Date: 20120405
  Receipt Date: 20120402
  Transmission Date: 20120825
  Serious: Yes (Life-Threatening, Hospitalization)
  Sender: FDA-Public Use
  Company Number: US-ASTRAZENECA-2010SE30185

PATIENT
  Age: 19075 Day
  Sex: Male

DRUGS (25)
  1. IBUPROFEN [Concomitant]
     Indication: NECK PAIN
     Route: 048
  2. CALCITRIOL [Concomitant]
     Indication: MINERAL SUPPLEMENTATION
     Dosage: 1.0
     Route: 048
  3. POTASSIUM CHLORIDE [Concomitant]
     Dosage: 20
     Route: 048
     Dates: start: 20071201
  4. IBUPROFEN [Concomitant]
     Indication: PAIN
     Route: 048
  5. OYSTER SHELL CALCIUM [Concomitant]
     Indication: MINERAL SUPPLEMENTATION
     Dosage: 1000
     Route: 048
  6. CODINE SULFATE [Concomitant]
     Indication: DIARRHOEA
     Dosage: 60
     Route: 048
  7. MAGNESIUM [Concomitant]
     Indication: MEDICAL DIET
     Dosage: 62.5
     Route: 048
  8. WARFARIN SODIUM [Concomitant]
     Dosage: 4 MG 4 TIMES A WEEK
     Route: 048
     Dates: start: 20090325
  9. VANDETANIB [Suspect]
     Indication: THYROID CANCER
     Route: 048
     Dates: start: 20100429
  10. SYNTHROID [Concomitant]
     Indication: HYPOTHYROIDISM
     Dosage: 100
     Route: 048
     Dates: end: 20070626
  11. LORETANIDE [Concomitant]
     Indication: SEASONAL ALLERGY
     Route: 048
     Dates: start: 20070301
  12. POTASSIUM CHLORIDE [Concomitant]
     Indication: HYPOKALAEMIA
     Dosage: 40
     Route: 048
     Dates: start: 20070201, end: 20071201
  13. POTASSIUM CHLORIDE [Concomitant]
     Dosage: 20
     Route: 048
     Dates: start: 20071201
  14. SYNTHROID [Concomitant]
     Dosage: 88
     Route: 048
     Dates: start: 20070627, end: 20081117
  15. WARFARIN SODIUM [Concomitant]
     Dosage: 2
     Route: 048
     Dates: start: 20090130, end: 20090309
  16. CODINE SULFATE [Concomitant]
     Indication: PAIN
     Dosage: 60
     Route: 048
  17. METOPROLOL SUCCINATE [Concomitant]
     Indication: ATRIAL FLUTTER
  18. IBUPROFEN [Concomitant]
     Indication: MUSCULOSKELETAL PAIN
     Route: 048
  19. POTASSIUM CHLORIDE [Concomitant]
     Indication: MINERAL SUPPLEMENTATION
     Dosage: 40
     Route: 048
     Dates: start: 20070201, end: 20071201
  20. WARFARIN SODIUM [Concomitant]
     Indication: ATRIAL FLUTTER
     Dosage: 4
     Route: 048
     Dates: start: 20090128, end: 20090129
  21. IMODIUM [Concomitant]
     Indication: DIARRHOEA
     Dosage: 10
     Route: 048
  22. IBUPROFEN [Concomitant]
     Indication: HEADACHE
     Route: 048
  23. IRON [Concomitant]
     Indication: MEDICAL DIET
     Dosage: 16
     Route: 048
  24. SYNTHROID [Concomitant]
     Dosage: 100
     Route: 048
     Dates: start: 20081118
  25. WARFARIN SODIUM [Concomitant]
     Route: 048
     Dates: start: 20090325

REACTIONS (2)
  - ANAEMIA [None]
  - GASTROINTESTINAL ARTERIOVENOUS MALFORMATION [None]
